FAERS Safety Report 11514138 (Version 1)
Quarter: 2015Q3

REPORT INFORMATION
  Report Type: Spontaneous
  Country: US (occurrence: US)
  Receive Date: 20150903
  Receipt Date: 20150903
  Transmission Date: 20151125
  Serious: No
  Sender: FDA-Public Use
  Company Number: US-ELI_LILLY_AND_COMPANY-US201212005292

PATIENT
  Age: 50 Year
  Sex: Female

DRUGS (3)
  1. LYRICA [Concomitant]
     Active Substance: PREGABALIN
  2. ATENOLOL. [Concomitant]
     Active Substance: ATENOLOL
  3. CYMBALTA [Suspect]
     Active Substance: DULOXETINE HYDROCHLORIDE
     Indication: FIBROMYALGIA
     Dosage: UNK

REACTIONS (9)
  - Mental impairment [Unknown]
  - Speech disorder [Unknown]
  - Fatigue [Unknown]
  - Asthenia [Unknown]
  - Cold sweat [Unknown]
  - Hypoglycaemia [Unknown]
  - Tremor [Unknown]
  - Glucose tolerance impaired [Unknown]
  - Insomnia [Unknown]
